FAERS Safety Report 17363817 (Version 3)
Quarter: 2022Q1

REPORT INFORMATION
  Report Type: Report from Study
  Country: BE (occurrence: BE)
  Receive Date: 20200203
  Receipt Date: 20220120
  Transmission Date: 20220424
  Serious: Yes (Hospitalization)
  Sender: FDA-Public Use
  Company Number: BE-ABBVIE-20K-013-3253416-00

PATIENT
  Age: 32 Year
  Sex: Male
  Weight: 72 kg

DRUGS (2)
  1. HUMIRA [Suspect]
     Active Substance: ADALIMUMAB
     Indication: Colitis ulcerative
     Route: 058
     Dates: start: 20161222, end: 20210930
  2. LEVOCETIRIZINE [Concomitant]
     Active Substance: LEVOCETIRIZINE
     Indication: Prophylaxis
     Dosage: FREQUENCY: 30 MINUTES BEFORE ADALIMUMAB INJECTION
     Route: 048
     Dates: start: 2018

REACTIONS (3)
  - Productive cough [Recovered/Resolved]
  - Productive cough [Not Recovered/Not Resolved]
  - Cough [Recovered/Resolved]

NARRATIVE: CASE EVENT DATE: 20191101
